FAERS Safety Report 6970150-4 (Version None)
Quarter: 2010Q3

REPORT INFORMATION
  Report Type: 
  Country: None (occurrence: None)
  Receive Date: 20100903
  Receipt Date: 20100825
  Transmission Date: 20110219
  Serious: Yes (Other)
  Sender: FDA-Public Use
  Company Number: 2009JP001720

PATIENT
  Age: 11 Week
  Sex: Female
  Weight: 3.8 kg

DRUGS (13)
  1. PROGRAF [Suspect]
     Indication: LIVER TRANSPLANT
     Dosage: 1.35 MG, BID, ORAL; 2 MG, BID, ORAL; 1.8 MG, BID, ORAL
     Route: 048
     Dates: end: 20080303
  2. PROGRAF [Suspect]
     Indication: LIVER TRANSPLANT
     Dosage: 1.35 MG, BID, ORAL; 2 MG, BID, ORAL; 1.8 MG, BID, ORAL
     Route: 048
     Dates: start: 20080212
  3. PROGRAF [Suspect]
     Indication: LIVER TRANSPLANT
     Dosage: 1.35 MG, BID, ORAL; 2 MG, BID, ORAL; 1.8 MG, BID, ORAL
     Route: 048
     Dates: start: 20080329
  4. NEOMERCK (CICLOSPORIN) FINE GRANULE [Suspect]
     Indication: LIVER TRANSPLANT
     Dosage: 200 MG, BID, ORAL
     Route: 048
     Dates: start: 20080303, end: 20080329
  5. SOLU-MEDROL [Concomitant]
  6. PREDNISOLONE [Concomitant]
  7. FUNGUARD (MICAFUNGIN) INJECTION [Concomitant]
  8. GANCICLOVIR [Concomitant]
  9. MEROPENEM [Concomitant]
  10. VANCOMYCIN [Concomitant]
  11. CLAFORAN [Concomitant]
  12. VICCILLIN (AMPICILLIN) INJECTION [Concomitant]
  13. FOSCAVIR [Concomitant]

REACTIONS (2)
  - HYPERTENSION [None]
  - TOXIC ENCEPHALOPATHY [None]
